FAERS Safety Report 20732088 (Version 1)
Quarter: 2022Q2

REPORT INFORMATION
  Report Type: Spontaneous
  Country: DE (occurrence: DE)
  Receive Date: 20220420
  Receipt Date: 20220420
  Transmission Date: 20220720
  Serious: Yes (Other)
  Sender: FDA-Public Use
  Company Number: None

PATIENT
  Age: 71 Year
  Sex: Male
  Weight: 85 kg

DRUGS (1)
  1. PAXLOVID [Suspect]
     Active Substance: NIRMATRELVIR\RITONAVIR
     Indication: COVID-19 treatment
     Dosage: [PF-07321332 300 MG]/[RITONAVIR 100 MG]; 2X/DAY (REPORTED AS 2+1-0-2+1)
     Route: 048
     Dates: start: 20220315, end: 20220320

REACTIONS (7)
  - Pneumonia [Unknown]
  - Pruritus [Unknown]
  - Hypersensitivity [Unknown]
  - Rash vesicular [Unknown]
  - Scab [Unknown]
  - Rash erythematous [Unknown]
  - Rash pustular [Unknown]

NARRATIVE: CASE EVENT DATE: 20220317
